FAERS Safety Report 8770766 (Version 1)
Quarter: 2012Q4

REPORT INFORMATION
  Report Type: 
  Country: US (occurrence: US)
  Receive Date: 20120906
  Receipt Date: 20120906
  Transmission Date: 20130627
  Serious: No
  Sender: FDA-Public Use
  Company Number: US-BAYER-2012-090655

PATIENT
  Age: 39 Year
  Sex: Female
  Weight: 80 kg

DRUGS (8)
  1. BETASERON [Suspect]
     Dosage: 0.3 mg, QOD
     Route: 058
     Dates: end: 201206
  2. BACLOFEN [Concomitant]
     Dosage: 20 mg
  3. VITAMIN B12 [Concomitant]
     Dosage: 1000 CR
  4. FOLBIC [Concomitant]
  5. MANGANESE [Concomitant]
     Dosage: 15 mg
  6. B-COMPLEX [VITAMIN B NOS] [Concomitant]
  7. VITAMIN B6 [Concomitant]
     Dosage: 250 mg
  8. CHOLINE [Concomitant]
     Dosage: 650 mg

REACTIONS (5)
  - Injection site haematoma [Recovering/Resolving]
  - Injection site pain [Recovering/Resolving]
  - Injection site induration [Recovering/Resolving]
  - Anxiety [Recovering/Resolving]
  - Fatigue [Recovering/Resolving]
